FAERS Safety Report 9725742 (Version 2)
Quarter: 2013Q4

REPORT INFORMATION
  Report Type: Spontaneous
  Country: DE (occurrence: DE)
  Receive Date: 20131203
  Receipt Date: 20131203
  Transmission Date: 20140711
  Serious: Yes (Hospitalization, Other)
  Sender: FDA-Public Use
  Company Number: DE-JNJFOC-20130815314

PATIENT
  Age: 72 Year
  Sex: Male
  Weight: 96.14 kg

DRUGS (10)
  1. XARELTO [Suspect]
     Indication: ATRIAL FIBRILLATION
     Route: 048
  2. XARELTO [Suspect]
     Indication: ATRIAL FIBRILLATION
     Route: 048
     Dates: end: 20130814
  3. XARELTO [Suspect]
     Indication: CEREBROVASCULAR ACCIDENT PROPHYLAXIS
     Route: 048
  4. XARELTO [Suspect]
     Indication: CEREBROVASCULAR ACCIDENT PROPHYLAXIS
     Route: 048
     Dates: end: 20130814
  5. FINASTERIDE [Concomitant]
     Route: 065
  6. BISOPROLOL [Concomitant]
     Route: 065
  7. PANTOZOL [Concomitant]
     Route: 065
  8. MOVICOL [Concomitant]
     Route: 065
  9. TOREM [Concomitant]
     Route: 065
  10. UNACID [Concomitant]
     Route: 065

REACTIONS (3)
  - Post procedural haemorrhage [Unknown]
  - Hypovolaemic shock [Recovered/Resolved]
  - Retroperitoneal haemorrhage [Recovered/Resolved]
